FAERS Safety Report 4816952-1 (Version None)
Quarter: 2005Q3

REPORT INFORMATION
  Report Type: 
  Country: None (occurrence: None)
  Receive Date: 20050929
  Receipt Date: 20050617
  Transmission Date: 20060218
  Serious: No
  Sender: FDA-Public Use
  Company Number: 05P-163-0303481

PATIENT
  Age: 65 Year
  Sex: Female
  Weight: 93 kg

DRUGS (10)
  1. HUMIRA [Suspect]
     Indication: RHEUMATOID ARTHRITIS
     Dosage: 40 MG, SUBCUTANEOUS
     Route: 058
     Dates: start: 20050604, end: 20050604
  2. AZATHIOPRINE [Concomitant]
  3. PREDNISONE [Concomitant]
  4. POTASSIUM [Concomitant]
  5. RABEPRAZOLE SODIUM [Concomitant]
  6. CENTRUM [Concomitant]
  7. VENLAFAXINE HYDROCHLORIDE [Concomitant]
  8. FISH OIL [Concomitant]
  9. DIURETICS [Concomitant]
  10. THYROID TAB [Concomitant]

REACTIONS (5)
  - DYSPHAGIA [None]
  - INJECTION SITE ERYTHEMA [None]
  - INJECTION SITE NODULE [None]
  - INJECTION SITE PRURITUS [None]
  - RASH [None]
